FAERS Safety Report 17861990 (Version 1)
Quarter: 2020Q2

REPORT INFORMATION
  Report Type: Spontaneous
  Country: CN (occurrence: CN)
  Receive Date: 20200604
  Receipt Date: 20200604
  Transmission Date: 20200714
  Serious: Yes (Other)
  Sender: FDA-Public Use
  Company Number: CN-ASTRAZENECA-2020SE70145

PATIENT
  Age: 74 Year
  Sex: Male
  Weight: 40 kg

DRUGS (5)
  1. ATROVENT [Suspect]
     Active Substance: IPRATROPIUM BROMIDE
     Indication: ASTHMA
     Route: 055
     Dates: start: 20200510, end: 20200513
  2. ATROVENT [Suspect]
     Active Substance: IPRATROPIUM BROMIDE
     Indication: INFLAMMATION
     Route: 055
     Dates: start: 20200510, end: 20200513
  3. SODIUM CHLORIDE. [Concomitant]
     Active Substance: SODIUM CHLORIDE
     Dosage: 0.9% 10ML: 0.09G
  4. PULMICORT RESPULES [Suspect]
     Active Substance: BUDESONIDE
     Indication: INFLAMMATION
     Route: 055
     Dates: start: 20200510, end: 20200513
  5. PULMICORT RESPULES [Suspect]
     Active Substance: BUDESONIDE
     Indication: ASTHMA
     Route: 055
     Dates: start: 20200510, end: 20200513

REACTIONS (4)
  - Oxygen saturation decreased [Unknown]
  - Rales [Unknown]
  - Dyspnoea [Recovering/Resolving]
  - Heart rate increased [Unknown]

NARRATIVE: CASE EVENT DATE: 20200513
